FAERS Safety Report 5337680-2 (Version None)
Quarter: 2007Q2

REPORT INFORMATION
  Report Type: 
  Country: None (occurrence: None)
  Receive Date: 20070315
  Receipt Date: 20060425
  Transmission Date: 20071010
  Serious: Yes (Disabling, Other)
  Sender: FDA-Public Use
  Company Number: PHEH2006US03411

PATIENT
  Age: 17 Year
  Sex: Female
  Weight: 59 kg

DRUGS (6)
  1. TRILEPTAL [Suspect]
     Indication: BIPOLAR DISORDER
     Dosage: SEE IMAGE
     Route: 048
     Dates: end: 20060223
  2. TRILEPTAL [Suspect]
     Indication: BIPOLAR DISORDER
     Dosage: SEE IMAGE
     Route: 048
     Dates: start: 20051101, end: 20060301
  3. TRILEPTAL [Suspect]
     Indication: BIPOLAR DISORDER
     Dosage: SEE IMAGE
     Route: 048
     Dates: start: 20060225
  4. BIAXIN [Suspect]
     Indication: INFECTIOUS MONONUCLEOSIS
     Dates: start: 20060201
  5. LEVAQUIN [Suspect]
     Indication: INFECTIOUS MONONUCLEOSIS
  6. PREDNISOLONE [Suspect]
     Indication: PHARYNGEAL OEDEMA
     Dosage: 40 MG, INTRAVENOUS
     Route: 042
     Dates: start: 20060201, end: 20060221

REACTIONS (7)
  - AMNESIA [None]
  - CONFUSIONAL STATE [None]
  - DISTURBANCE IN ATTENTION [None]
  - DIZZINESS [None]
  - MIDDLE INSOMNIA [None]
  - PNEUMONIA [None]
  - TREMOR [None]
